FAERS Safety Report 8767618 (Version 1)
Quarter: 2012Q4

REPORT INFORMATION
  Report Type: 
  Country: US (occurrence: US)
  Receive Date: 20120904
  Receipt Date: 20120904
  Transmission Date: 20130627
  Serious: Yes (Hospitalization)
  Sender: FDA-Public Use
  Company Number: US-JNJFOC-20120814318

PATIENT
  Sex: Female

DRUGS (3)
  1. NUCYNTA [Suspect]
     Indication: CERVICAL SPINAL STENOSIS
     Dosage: every 12 hours
     Route: 048
     Dates: start: 20110428
  2. NUCYNTA [Suspect]
     Indication: UPPER MOTOR NEURONE LESION
     Dosage: every 12 hours
     Route: 048
     Dates: start: 20110428
  3. LITHIUM [Concomitant]
     Indication: PRODUCT USED FOR UNKNOWN INDICATION
     Dosage: twice daily
     Route: 065

REACTIONS (1)
  - Volvulus [Recovered/Resolved]
